FAERS Safety Report 21990043 (Version 2)
Quarter: 2023Q2

REPORT INFORMATION
  Report Type: Spontaneous
  Country: US (occurrence: US)
  Receive Date: 20230214
  Receipt Date: 20230406
  Transmission Date: 20230722
  Serious: No
  Sender: FDA-Public Use
  Company Number: US-PFIZER INC-2021077889

PATIENT
  Age: 68 Year
  Sex: Male

DRUGS (1)
  1. SOMAVERT [Suspect]
     Active Substance: PEGVISOMANT
     Dosage: 20 MG, DAILY (7DAYS/WK)

REACTIONS (3)
  - Swelling [Unknown]
  - Gait disturbance [Unknown]
  - Intentional product misuse [Unknown]
